FAERS Safety Report 5826643-6 (Version None)
Quarter: 2008Q3

REPORT INFORMATION
  Report Type: 
  Country: None (occurrence: None)
  Receive Date: 20080728
  Receipt Date: 20080728
  Transmission Date: 20090109
  Serious: Yes (Life-Threatening, Hospitalization)
  Sender: FDA-Public Use
  Company Number: None

PATIENT
  Age: 57 Year
  Sex: Female
  Weight: 81.4 kg

DRUGS (9)
  1. EPINEPHRINE [Suspect]
     Indication: HYPERSENSITIVITY
     Dosage: 0.3MG ONCE SQ
     Route: 058
     Dates: start: 20070924, end: 20070924
  2. LISINOPRIL [Suspect]
     Indication: HYPERTENSION
     Dosage: 10MG DAILY PO
     Route: 048
  3. ACTIVELLA [Concomitant]
  4. CLONAZEPAM [Concomitant]
  5. LEXAPRO [Concomitant]
  6. INDERAL LA [Concomitant]
  7. NEXIUM [Concomitant]
  8. VYTORIN [Concomitant]
  9. LISINOPRIL [Suspect]

REACTIONS (8)
  - ANGIOEDEMA [None]
  - CHEST DISCOMFORT [None]
  - HYPERHIDROSIS [None]
  - HYPERSENSITIVITY [None]
  - HYPERTENSION [None]
  - HYPOTENSION [None]
  - MYOCARDIAL INFARCTION [None]
  - SINUS BRADYCARDIA [None]
